FAERS Safety Report 14093347 (Version 1)
Quarter: 2017Q4

REPORT INFORMATION
  Report Type: Report from Study
  Country: US (occurrence: US)
  Receive Date: 20171016
  Receipt Date: 20171016
  Transmission Date: 20180321
  Serious: Yes (Other)
  Sender: FDA-Public Use
  Company Number: US-JNJFOC-20170611555

PATIENT
  Age: 86 Year
  Sex: Male

DRUGS (16)
  1. ELIDEL [Concomitant]
     Active Substance: PIMECROLIMUS
  2. MUCINEX [Concomitant]
     Active Substance: GUAIFENESIN
  3. SINGULAIR [Concomitant]
     Active Substance: MONTELUKAST SODIUM
  4. IMBRUVICA [Suspect]
     Active Substance: IBRUTINIB
     Indication: LYMPHOMA
     Route: 048
     Dates: start: 20170601
  5. IMBRUVICA [Suspect]
     Active Substance: IBRUTINIB
     Indication: CHRONIC LYMPHOCYTIC LEUKAEMIA
     Route: 048
     Dates: start: 20170601
  6. CENTRUM SILVER [Concomitant]
     Active Substance: MINERALS\VITAMINS
  7. ZANTAC [Concomitant]
     Active Substance: RANITIDINE HYDROCHLORIDE
  8. GLICLAZIDE [Concomitant]
     Active Substance: GLICLAZIDE
  9. MULTIVITAMINS [Concomitant]
     Active Substance: VITAMINS
  10. IMBRUVICA [Suspect]
     Active Substance: IBRUTINIB
     Indication: CHRONIC LYMPHOCYTIC LEUKAEMIA
     Route: 048
     Dates: start: 20170531
  11. OSTEO BI-FLEX [Concomitant]
     Active Substance: CHONDROITIN SULFATE A\GLUCOSAMINE
     Indication: ARTHROPATHY
  12. CIMETIDINE [Concomitant]
     Active Substance: CIMETIDINE
  13. LORATADINE. [Concomitant]
     Active Substance: LORATADINE
  14. KETOCONAZOLE. [Concomitant]
     Active Substance: KETOCONAZOLE
  15. IMBRUVICA [Suspect]
     Active Substance: IBRUTINIB
     Indication: LYMPHOMA
     Route: 048
     Dates: start: 20170531
  16. LOSARTAN POTASSIUM. [Concomitant]
     Active Substance: LOSARTAN POTASSIUM
     Indication: BLOOD PRESSURE MEASUREMENT

REACTIONS (17)
  - Nasal ulcer [Unknown]
  - Oropharyngeal pain [Not Recovered/Not Resolved]
  - Constipation [Unknown]
  - Productive cough [Recovered/Resolved]
  - Blood pressure decreased [Not Recovered/Not Resolved]
  - Seasonal allergy [Unknown]
  - Nasal discomfort [Unknown]
  - Sputum discoloured [Not Recovered/Not Resolved]
  - Somnolence [Unknown]
  - Dyspnoea [Unknown]
  - Nasopharyngitis [Unknown]
  - Aphonia [Recovering/Resolving]
  - Dysphonia [Not Recovered/Not Resolved]
  - Papule [Not Recovered/Not Resolved]
  - Fatigue [Not Recovered/Not Resolved]
  - Malaise [Unknown]
  - Pyrexia [Unknown]

NARRATIVE: CASE EVENT DATE: 2017
